FAERS Safety Report 8976716 (Version 1)
Quarter: 2012Q4

REPORT INFORMATION
  Report Type: 
  Country: US (occurrence: US)
  Receive Date: 20121220
  Receipt Date: 20121220
  Transmission Date: 20130627
  Serious: Yes (Other)
  Sender: FDA-Public Use
  Company Number: US-AMGEN-USASP2012080714

PATIENT
  Age: 39 Year
  Sex: Male

DRUGS (1)
  1. ARANESP [Suspect]
     Indication: ANAEMIA OF CHRONIC DISEASE
     Dosage: 100 mug, UNK

REACTIONS (4)
  - Osteomyelitis [Unknown]
  - Decubitus ulcer [Unknown]
  - Injury [Unknown]
  - Drug ineffective [Unknown]
